FAERS Safety Report 13225715 (Version 1)
Quarter: 2017Q1

REPORT INFORMATION
  Report Type: Spontaneous
  Country: CZ (occurrence: CZ)
  Receive Date: 20170213
  Receipt Date: 20170213
  Transmission Date: 20170428
  Serious: Yes (Life-Threatening, Hospitalization, Other)
  Sender: FDA-Public Use
  Company Number: CZ-GLAXOSMITHKLINE-CZ2017019011

PATIENT
  Age: 60 Year
  Sex: Male
  Weight: 118 kg

DRUGS (1)
  1. ZINNAT [Suspect]
     Active Substance: CEFUROXIME AXETIL
     Indication: LUNG DISORDER
     Dosage: 500 MG, UNK
     Route: 065
     Dates: start: 20170126, end: 20170205

REACTIONS (2)
  - Rash generalised [Unknown]
  - Rash pruritic [Unknown]

NARRATIVE: CASE EVENT DATE: 20170204
